FAERS Safety Report 22647171 (Version 1)
Quarter: 2023Q2

REPORT INFORMATION
  Report Type: Spontaneous
  Country: RU (occurrence: None)
  Receive Date: 20230627
  Receipt Date: 20230627
  Transmission Date: 20230722
  Serious: Yes (Other)
  Sender: FDA-Public Use
  Company Number: 2023A144611

PATIENT
  Age: 9 Year
  Sex: Male
  Weight: 53 kg

DRUGS (3)
  1. KOSELUGO [Suspect]
     Active Substance: SELUMETINIB
     Indication: Targeted cancer therapy
     Route: 048
     Dates: start: 20220819
  2. KOSELUGO [Suspect]
     Active Substance: SELUMETINIB
     Indication: Targeted cancer therapy
     Route: 048
     Dates: start: 20220819
  3. KOSELUGO [Suspect]
     Active Substance: SELUMETINIB
     Indication: Targeted cancer therapy
     Route: 048
     Dates: start: 20220819

REACTIONS (2)
  - Skin toxicity [Recovering/Resolving]
  - Cardiotoxicity [Recovering/Resolving]
